FAERS Safety Report 7091287-8 (Version None)
Quarter: 2010Q4

REPORT INFORMATION
  Report Type: 
  Country: None (occurrence: None)
  Receive Date: 20101109
  Receipt Date: 20101104
  Transmission Date: 20110411
  Serious: Yes (Hospitalization)
  Sender: FDA-Public Use
  Company Number: DE-AMGEN-DEUNI2010003170

PATIENT

DRUGS (1)
  1. PEGFILGRASTIM [Suspect]
     Indication: PROPHYLACTIC CHEMOTHERAPY
     Dosage: 6 MG, Q3WK
     Route: 058
     Dates: start: 20100919

REACTIONS (2)
  - ERYTHEMA [None]
  - RASH [None]
